FAERS Safety Report 11827199 (Version 1)
Quarter: 2015Q4

REPORT INFORMATION
  Report Type: Spontaneous
  Country: JP (occurrence: JP)
  Receive Date: 20151211
  Receipt Date: 20151211
  Transmission Date: 20160305
  Serious: Yes (Other)
  Sender: FDA-Public Use
  Company Number: PHHY2015JP162810

PATIENT
  Age: 43 Year
  Sex: Female
  Weight: 58 kg

DRUGS (3)
  1. ZOSYN [Concomitant]
     Active Substance: PIPERACILLIN SODIUM\TAZOBACTAM SODIUM
     Indication: FEBRILE NEUTROPENIA
     Dosage: 13.5 G, UNK
     Route: 042
     Dates: start: 20150604, end: 20150618
  2. CEFTRIAXONE SODIUM SESQUATERHYDRATE [Concomitant]
     Indication: FEBRILE NEUTROPENIA
     Dosage: 2 G, UNK
     Route: 042
     Dates: start: 20150601, end: 20150604
  3. HYCAMTIN [Suspect]
     Active Substance: TOPOTECAN HYDROCHLORIDE
     Indication: FALLOPIAN TUBE CANCER
     Dosage: 1.8 MG, UNK
     Route: 042
     Dates: start: 20150518, end: 20150522

REACTIONS (1)
  - Bone marrow failure [Unknown]

NARRATIVE: CASE EVENT DATE: 20150527
